FAERS Safety Report 15110920 (Version 1)
Quarter: 2018Q3

REPORT INFORMATION
  Report Type: Spontaneous
  Country: US (occurrence: US)
  Receive Date: 20180705
  Receipt Date: 20180705
  Transmission Date: 20181010
  Serious: No
  Sender: FDA-Public Use
  Company Number: US-NATCO PHARMA-2017NAT00081

PATIENT
  Sex: Female

DRUGS (5)
  1. RIZATRIPTAN. [Suspect]
     Active Substance: RIZATRIPTAN
     Indication: MIGRAINE
     Dosage: 5 MG, AS NEEDED
     Route: 048
  2. RIZATRIPTAN. [Suspect]
     Active Substance: RIZATRIPTAN
     Dosage: 5 MG, AS NEEDED
     Route: 048
  3. RIZATRIPTAN. [Concomitant]
     Active Substance: RIZATRIPTAN
     Indication: MIGRAINE
     Dosage: UNK
     Dates: start: 2007
  4. PRILOSEC [Concomitant]
     Active Substance: OMEPRAZOLE MAGNESIUM
     Dosage: UNK, AS NEEDED
  5. UNSPECIFIED HORMONE PATCH [Concomitant]

REACTIONS (4)
  - Feeling hot [Unknown]
  - Palpitations [Unknown]
  - Somnolence [Unknown]
  - Drug effect increased [Unknown]
